FAERS Safety Report 5377810-X (Version None)
Quarter: 2007Q3

REPORT INFORMATION
  Report Type: 
  Country: None (occurrence: None)
  Receive Date: 20070703
  Receipt Date: 20070621
  Transmission Date: 20080115
  Serious: Yes (Hospitalization, Other)
  Sender: FDA-Public Use
  Company Number: US-PFIZER INC-2007052642

PATIENT
  Sex: Female
  Weight: 82.6 kg

DRUGS (4)
  1. CHANTIX [Suspect]
     Indication: SMOKING CESSATION THERAPY
  2. ZESTRIL [Concomitant]
  3. PROZAC [Concomitant]
  4. ALLEGRA [Concomitant]

REACTIONS (4)
  - ACUTE CORONARY SYNDROME [None]
  - ANGINA PECTORIS [None]
  - MYOCARDIAL INFARCTION [None]
  - PERIPHERAL VASCULAR DISORDER [None]
